FAERS Safety Report 4957738-7 (Version None)
Quarter: 2006Q1

REPORT INFORMATION
  Report Type: 
  Country: None (occurrence: None)
  Receive Date: 20060330
  Receipt Date: 20051223
  Transmission Date: 20060701
  Serious: Yes (Hospitalization)
  Sender: FDA-Public Use
  Company Number: JP-ABBOTT-05P-087-0320630-00

PATIENT
  Sex: Female

DRUGS (6)
  1. LIPIDIL [Suspect]
     Indication: HYPERLIPIDAEMIA
     Route: 048
     Dates: start: 20050927, end: 20051120
  2. VOGLIBOSE [Concomitant]
     Indication: DRUG USE FOR UNKNOWN INDICATION
     Dates: start: 20050217, end: 20051120
  3. NATEGLINIDE [Concomitant]
     Indication: DRUG USE FOR UNKNOWN INDICATION
     Dates: start: 20050217, end: 20051120
  4. AMLODIPINE BESYLATE [Concomitant]
     Indication: DRUG USE FOR UNKNOWN INDICATION
     Dates: start: 20050217, end: 20051120
  5. VALSARTAN [Concomitant]
     Indication: DRUG USE FOR UNKNOWN INDICATION
     Dates: start: 20050217, end: 20051120
  6. HMG COA REDUCTASE INHIBITORS [Concomitant]
     Indication: DRUG USE FOR UNKNOWN INDICATION
     Dates: start: 20050217, end: 20050927

REACTIONS (7)
  - ANOREXIA [None]
  - CHOLESTASIS [None]
  - CHROMATURIA [None]
  - EPIGASTRIC DISCOMFORT [None]
  - JAUNDICE [None]
  - LIVER DISORDER [None]
  - PRURITUS [None]
